FAERS Safety Report 7819468-3 (Version None)
Quarter: 2011Q4

REPORT INFORMATION
  Report Type: 
  Country: None (occurrence: None)
  Receive Date: 20111018
  Receipt Date: 20101119
  Transmission Date: 20120403
  Serious: No
  Sender: FDA-Public Use
  Company Number: US-ASTRAZENECA-2010SE55309

PATIENT
  Age: 60 Year
  Sex: Female
  Weight: 99.8 kg

DRUGS (5)
  1. NEXIUM [Concomitant]
  2. WATER PILL [Concomitant]
     Dosage: AS REQUIRED
  3. SYMBICORT [Suspect]
     Indication: CHRONIC OBSTRUCTIVE PULMONARY DISEASE
     Dosage: 320 MCG BID
     Route: 055
  4. CRESTOR [Concomitant]
  5. VITAMIN TAB [Concomitant]

REACTIONS (5)
  - COUGH [None]
  - DRUG DOSE OMISSION [None]
  - NASAL CONGESTION [None]
  - LOWER RESPIRATORY TRACT INFECTION [None]
  - BRONCHITIS [None]
